FAERS Safety Report 4273500-5 (Version None)
Quarter: 2004Q1

REPORT INFORMATION
  Report Type: 
  Country: None (occurrence: None)
  Receive Date: 20040119
  Receipt Date: 20031230
  Transmission Date: 20041129
  Serious: Yes (Death, Life-Threatening, Hospitalization, Other)
  Sender: FDA-Public Use
  Company Number: EG-GLAXOSMITHKLINE-B0318769A

PATIENT
  Age: 68 Year
  Sex: Male

DRUGS (8)
  1. LAMICTAL [Suspect]
     Indication: EPILEPSY
     Route: 065
     Dates: start: 20031105, end: 20031230
  2. CLOPIDOGREL BISULPHATE [Concomitant]
     Dosage: 75MG PER DAY
  3. ASPIRIN [Concomitant]
     Dosage: 150MG PER DAY
  4. RANITIDINE [Concomitant]
     Dosage: 300MG PER DAY
  5. OXPENTIFYLLINE [Concomitant]
     Dosage: 400MG THREE TIMES PER DAY
  6. PIRACETAM [Concomitant]
     Dosage: 800MG THREE TIMES PER DAY
  7. AMIODARONE HYDROCHLORIDE [Concomitant]
     Dosage: 200MG TWICE PER DAY
  8. DEPAKINE [Concomitant]
     Dosage: 500MG TWICE PER DAY

REACTIONS (7)
  - DEATH [None]
  - MEDICATION ERROR [None]
  - PNEUMONIA ASPIRATION [None]
  - RASH GENERALISED [None]
  - SEPSIS [None]
  - SKIN INFECTION [None]
  - STEVENS-JOHNSON SYNDROME [None]
